FAERS Safety Report 21067437 (Version 1)
Quarter: 2022Q3

REPORT INFORMATION
  Report Type: Other
  Country: None (occurrence: US)
  Receive Date: 20220712
  Receipt Date: 20220712
  Transmission Date: 20221027
  Serious: Yes (Other)
  Sender: FDA-Public Use
  Company Number: US-Ajanta Pharma USA Inc.-2130766

PATIENT
  Age: 36 Year
  Sex: Male

DRUGS (6)
  1. ARIPIPRAZOLE [Suspect]
     Active Substance: ARIPIPRAZOLE
     Indication: Schizoaffective disorder
  2. ISONIAZID [Suspect]
     Active Substance: ISONIAZID
  3. CLOZAPINE [Concomitant]
     Active Substance: CLOZAPINE
  4. VALPROIC ACID [Concomitant]
     Active Substance: VALPROIC ACID
  5. LORAZEPAM [Concomitant]
     Active Substance: LORAZEPAM
  6. PYRIDOXINE HYDROCHLORIDE [Concomitant]
     Active Substance: PYRIDOXINE HYDROCHLORIDE

REACTIONS (2)
  - Substance-induced psychotic disorder [Recovered/Resolved]
  - Drug interaction [Recovered/Resolved]
